FAERS Safety Report 24167949 (Version 1)
Quarter: 2024Q3

REPORT INFORMATION
  Report Type: Spontaneous
  Country: US (occurrence: None)
  Receive Date: 20240802
  Receipt Date: 20240802
  Transmission Date: 20241017
  Serious: Yes (Hospitalization)
  Sender: Public
  Company Number: None

PATIENT
  Sex: Male
  Weight: 86.2 kg

DRUGS (4)
  1. FLUOROURACIL [Suspect]
     Active Substance: FLUOROURACIL
     Dates: start: 20240327, end: 20240724
  2. LEUCOVORIN CALCIUM [Concomitant]
     Active Substance: LEUCOVORIN CALCIUM
  3. NIVOLUMAB [Concomitant]
     Active Substance: NIVOLUMAB
  4. ELOXATIN [Concomitant]
     Active Substance: OXALIPLATIN

REACTIONS (3)
  - Chills [None]
  - Tremor [None]
  - Sepsis [None]

NARRATIVE: CASE EVENT DATE: 20240724
